FAERS Safety Report 5381375-6 (Version None)
Quarter: 2007Q2

REPORT INFORMATION
  Report Type: 
  Country: None (occurrence: None)
  Receive Date: 20070629
  Receipt Date: 20060517
  Transmission Date: 20071010
  Serious: Yes (Other)
  Sender: FDA-Public Use
  Company Number: 2006065605

PATIENT
  Age: 33 Year
  Sex: Female
  Weight: 43.9989 kg

DRUGS (1)
  1. ZOLOFT [Suspect]
     Indication: POSTPARTUM DEPRESSION
     Dosage: 75 MG (75 MG,1 IN 1 D)
     Dates: start: 20050101

REACTIONS (3)
  - ANXIETY [None]
  - EMOTIONAL DISORDER [None]
  - SUICIDE ATTEMPT [None]
